FAERS Safety Report 8042467-6 (Version None)
Quarter: 2012Q1

REPORT INFORMATION
  Report Type: 
  Country: None (occurrence: None)
  Receive Date: 20120112
  Receipt Date: 20120104
  Transmission Date: 20120608
  Serious: No
  Sender: FDA-Public Use
  Company Number: US-PFIZER INC-2012002571

PATIENT
  Sex: Female
  Weight: 61 kg

DRUGS (2)
  1. CHANTIX [Suspect]
     Indication: SMOKING CESSATION THERAPY
     Dosage: 0.5 MG, 1X/DAY
     Route: 048
     Dates: start: 20111113
  2. CHANTIX [Suspect]
     Dosage: UNK
     Route: 048

REACTIONS (1)
  - SKIN EXFOLIATION [None]
